FAERS Safety Report 7328013-0 (Version None)
Quarter: 2011Q1

REPORT INFORMATION
  Report Type: 
  Country: None (occurrence: None)
  Receive Date: 20110225
  Receipt Date: 20110225
  Transmission Date: 20110831
  Serious: Yes (Hospitalization)
  Sender: FDA-Public Use
  Company Number: None

PATIENT
  Age: 19 Year
  Sex: Male
  Weight: 61.2356 kg

DRUGS (1)
  1. HALDOL [Suspect]
     Indication: CONVULSION
     Dosage: IV OR INJECTION
     Route: 042
     Dates: start: 20110215

REACTIONS (1)
  - TARDIVE DYSKINESIA [None]
